FAERS Safety Report 9249454 (Version 1)
Quarter: 2013Q2

REPORT INFORMATION
  Report Type: Spontaneous
  Country: JP (occurrence: JP)
  Receive Date: 20130423
  Receipt Date: 20130423
  Transmission Date: 20140414
  Serious: Yes (Hospitalization)
  Sender: FDA-Public Use
  Company Number: JP-TEVA-399197ISR

PATIENT
  Age: 33 Year
  Sex: Female
  Weight: 78 kg

DRUGS (7)
  1. CISPLATIN [Suspect]
     Indication: OVARIAN GERM CELL CANCER
     Dosage: ON DAYS 1-5
     Route: 065
  2. BLEOMYCIN [Suspect]
     Indication: OVARIAN GERM CELL CANCER
     Dosage: ON DAYS 2, 9, AND 16
     Route: 065
  3. ETOPOSIDE [Concomitant]
     Indication: OVARIAN GERM CELL CANCER
     Dosage: ON DAYS 1-5
     Route: 065
  4. DEXAMETHASONE [Concomitant]
     Dosage: DAYS 1-5
     Route: 042
  5. ONDANSETRON [Concomitant]
     Dosage: DAYS 1-5
     Route: 042
  6. APREPITANT [Concomitant]
     Dosage: DAY 1
     Route: 048
  7. APREPITANT [Concomitant]
     Dosage: 80MG, DAYS 2-3
     Route: 048

REACTIONS (1)
  - Embolism [Recovering/Resolving]
